FAERS Safety Report 17195712 (Version 1)
Quarter: 2019Q4

REPORT INFORMATION
  Report Type: Other
  Country: FR (occurrence: FR)
  Receive Date: 20191224
  Receipt Date: 20191224
  Transmission Date: 20200122
  Serious: Yes (Hospitalization, Other)
  Sender: FDA-Public Use
  Company Number: FR-ASPEN-GLO2019FR013755

PATIENT
  Age: 38 Year
  Sex: Male
  Weight: 65 kg

DRUGS (19)
  1. CYCLOPHOSPHAMIDE. [Suspect]
     Active Substance: CYCLOPHOSPHAMIDE
     Indication: PROPHYLAXIS
     Dosage: 3800 MG
     Route: 042
     Dates: start: 20190110, end: 20190112
  2. TAZOCILLINE [Concomitant]
     Active Substance: PIPERACILLIN SODIUM\TAZOBACTAM SODIUM
     Indication: INFECTION
     Dosage: 16 G DAILY
     Route: 042
     Dates: start: 20190113, end: 20190127
  3. TAZOCILLINE [Concomitant]
     Active Substance: PIPERACILLIN SODIUM\TAZOBACTAM SODIUM
     Dosage: 16 G DAILY
     Route: 042
     Dates: start: 20190129, end: 20190206
  4. VANCOMYCIN [Concomitant]
     Active Substance: VANCOMYCIN
     Indication: INFECTION
     Dosage: 2.5 G DAILY
     Route: 042
     Dates: start: 20190116, end: 20190121
  5. CELLCEPT [Suspect]
     Active Substance: MYCOPHENOLATE MOFETIL\MYCOPHENOLATE MOFETIL HYDROCHLORIDE
     Indication: PRODUCT USED FOR UNKNOWN INDICATION
  6. VANCOMYCIN [Concomitant]
     Active Substance: VANCOMYCIN
     Dosage: 2 G DAILY
     Route: 042
     Dates: start: 20190114, end: 20190115
  7. SPECIAFOLDINE [Concomitant]
     Active Substance: FOLIC ACID
     Indication: ANAEMIA PROPHYLAXIS
     Dosage: 5 MG DAILY
     Route: 048
     Dates: start: 20190307
  8. THIOTEPA. [Suspect]
     Active Substance: THIOTEPA
     Indication: ALLOGENIC STEM CELL TRANSPLANTATION
     Dosage: 380 MG
     Route: 042
     Dates: start: 20181231, end: 20190101
  9. BACTRIM [Concomitant]
     Active Substance: SULFAMETHOXAZOLE\TRIMETHOPRIM
     Indication: INFECTION PROPHYLAXIS
     Dosage: 960 MG DAILY
     Route: 048
     Dates: start: 20190128
  10. PONATINIB [Concomitant]
     Active Substance: PONATINIB
     Indication: IMMUNOMODULATORY THERAPY
     Dosage: 15 MG DAILY
     Route: 048
     Dates: start: 20190315, end: 20190501
  11. NEURONTIN [Concomitant]
     Active Substance: GABAPENTIN
     Indication: EPILEPSY
     Dosage: 600 MG DAILY
     Route: 048
     Dates: start: 20190206
  12. FLUDARABINE [Suspect]
     Active Substance: FLUDARABINE PHOSPHATE
     Indication: ALLOGENIC STEM CELL TRANSPLANTATION
     Dosage: 40 MG/M2
     Route: 042
     Dates: start: 20190102, end: 20190105
  13. CHOLURSO [Concomitant]
     Active Substance: URSODIOL
     Indication: PROPHYLAXIS
     Dosage: 750 MG
  14. CICLOSPORIN [Concomitant]
     Active Substance: CYCLOSPORINE
     Indication: IMMUNOSUPPRESSANT DRUG THERAPY
     Dosage: 2 DOSAGES 75 MG DAILY
     Route: 048
     Dates: start: 201905
  15. BUSULFAN. [Suspect]
     Active Substance: BUSULFAN
     Indication: ALLOGENIC STEM CELL TRANSPLANTATION
     Dosage: 243.2 MG
     Route: 042
     Dates: start: 20190102, end: 20190103
  16. TRIFLUCAN [Concomitant]
     Active Substance: FLUCONAZOLE
     Indication: ANTIFUNGAL PROPHYLAXIS
     Dosage: 400 MG DAILY
     Route: 048
     Dates: start: 20190107, end: 20190315
  17. VALACICLOVIR [Concomitant]
     Active Substance: VALACYCLOVIR HYDROCHLORIDE
     Indication: INFECTION PROPHYLAXIS
     Dosage: 1 G DAILY
     Route: 048
     Dates: start: 20181231
  18. CLAMOXYL [Concomitant]
     Indication: INFECTION PROPHYLAXIS
     Dosage: 1 G DAILY
     Route: 048
     Dates: start: 20190128
  19. CICLOSPORIN [Suspect]
     Active Substance: CYCLOSPORINE
     Indication: IMMUNOSUPPRESSANT DRUG THERAPY
     Dosage: 2 DOSAGES 50 MG DAILY
     Route: 048
     Dates: start: 20190112

REACTIONS (1)
  - Chronic graft versus host disease [Recovering/Resolving]

NARRATIVE: CASE EVENT DATE: 20190512
